FAERS Safety Report 14930378 (Version 2)
Quarter: 2018Q3

REPORT INFORMATION
  Report Type: Report from Study
  Country: DE (occurrence: DE)
  Receive Date: 20180523
  Receipt Date: 20180803
  Transmission Date: 20181010
  Serious: Yes (Hospitalization)
  Sender: FDA-Public Use
  Company Number: DE-PFIZER INC-2018206421

PATIENT
  Age: 52 Year
  Sex: Male
  Weight: 72 kg

DRUGS (5)
  1. 5?FU [Suspect]
     Active Substance: FLUOROURACIL
     Indication: COLORECTAL CANCER METASTATIC
     Dosage: 4680 MG (MOST RECENT DOSE)
     Route: 042
     Dates: start: 20180108
  2. OXALIPLATIN. [Suspect]
     Active Substance: OXALIPLATIN
     Indication: COLORECTAL CANCER METASTATIC
     Dosage: 124 MG (MOST RECENT DOSE)
     Route: 042
     Dates: start: 20180108
  3. AVELUMAB [Suspect]
     Active Substance: AVELUMAB
     Indication: COLORECTAL CANCER METASTATIC
     Dosage: 693 MG (MOST RECENT DOSE)
     Route: 042
     Dates: start: 20180122
  4. LEUCOVORIN. [Suspect]
     Active Substance: LEUCOVORIN
     Indication: COLORECTAL CANCER METASTATIC
     Dosage: 780 MG (MOST RECENT DOSE)
     Dates: start: 20180108
  5. CETUXIMAB. [Suspect]
     Active Substance: CETUXIMAB
     Indication: COLORECTAL CANCER METASTATIC
     Dosage: 366 MG (MOST RECENT DOSE)
     Route: 042
     Dates: start: 20180108

REACTIONS (1)
  - Device related infection [Recovered/Resolved]

NARRATIVE: CASE EVENT DATE: 20180509
